FAERS Safety Report 8327939-9 (Version None)
Quarter: 2012Q2

REPORT INFORMATION
  Report Type: 
  Country: None (occurrence: None)
  Receive Date: 20120502
  Receipt Date: 20120427
  Transmission Date: 20120825
  Serious: Yes (Death, Hospitalization)
  Sender: FDA-Public Use
  Company Number: FR-SANOFI-AVENTIS-2012SA029754

PATIENT
  Age: 77 Year
  Sex: Male

DRUGS (9)
  1. ASPEGIC 1000 [Interacting]
     Route: 065
     Dates: start: 20120406
  2. BUDESONIDE/FORMOTEROL FUMARATE [Concomitant]
     Dosage: STRENGTH; 400/12 MCG, FORM; POWDER FOR INHALATION
     Route: 055
  3. HEPARIN SODIUM [Interacting]
     Route: 065
     Dates: start: 20120406
  4. ASPIRIN [Concomitant]
     Route: 048
  5. LERCANIDIPINE [Concomitant]
     Dosage: STRENGTH; 20 MG
  6. ORBENIN CAP [Concomitant]
     Dates: start: 20120401
  7. SPIRIVA [Concomitant]
     Dosage: STRENGTH; 18 MCG
     Route: 048
  8. AMOXICILLIN [Concomitant]
     Dates: start: 20120401
  9. PLAVIX [Suspect]
     Indication: MYOCARDIAL INFARCTION
     Route: 065
     Dates: start: 20120406

REACTIONS (3)
  - BRAIN DEATH [None]
  - CEREBRAL HAEMATOMA [None]
  - DRUG INTERACTION [None]
